FAERS Safety Report 24189176 (Version 1)
Quarter: 2024Q3

REPORT INFORMATION
  Report Type: Spontaneous
  Country: US (occurrence: None)
  Receive Date: 20240807
  Receipt Date: 20240807
  Transmission Date: 20241017
  Serious: Yes (Other)
  Sender: Public
  Company Number: None

PATIENT
  Age: 81 Year
  Sex: Female

DRUGS (1)
  1. EYLEA HD [Suspect]
     Active Substance: AFLIBERCEPT
     Indication: Neovascular age-related macular degeneration
     Dates: start: 20240603, end: 20240603

REACTIONS (5)
  - Eye inflammation [None]
  - Vitritis [None]
  - Anterior chamber cell [None]
  - Retinal vasculitis [None]
  - Retinal haemorrhage [None]

NARRATIVE: CASE EVENT DATE: 20240603
